FAERS Safety Report 18600115 (Version 2)
Quarter: 2020Q4

REPORT INFORMATION
  Report Type: Spontaneous
  Country: PR (occurrence: PR)
  Receive Date: 20201210
  Receipt Date: 20201215
  Transmission Date: 20210114
  Serious: No
  Sender: FDA-Public Use
  Company Number: PR-PFIZER INC-2020401055

PATIENT
  Age: 13 Year
  Sex: Male
  Weight: 54.42 kg

DRUGS (1)
  1. GENOTROPIN [Suspect]
     Active Substance: SOMATROPIN
     Indication: BLOOD GROWTH HORMONE ABNORMAL
     Dosage: 2.8 MG (2.8MG 6 DAYS A WK/ 2.8 MG ONCE DAILY INJECTIONS SIX TIMES PER WEEK)

REACTIONS (1)
  - Injection site pain [Unknown]
